FAERS Safety Report 18754371 (Version 1)
Quarter: 2021Q1

REPORT INFORMATION
  Report Type: Spontaneous
  Country: US (occurrence: US)
  Receive Date: 20210119
  Receipt Date: 20210119
  Transmission Date: 20210419
  Serious: No
  Sender: FDA-Public Use
  Company Number: US-009507513-2101USA001196

PATIENT
  Sex: Female

DRUGS (2)
  1. NEXPLANON [Suspect]
     Active Substance: ETONOGESTREL
     Indication: CONTRACEPTION
     Dosage: 1 ROD IMPLANT EVERY 3 YEARS; BETWEEN BICEP AND TRICEP, UNKNOWN WHICH SIDE
     Route: 023
     Dates: start: 201801
  2. NEXPLANON [Suspect]
     Active Substance: ETONOGESTREL
     Dosage: NEW IMPLANT; PLACED IN THE SAME ARM BUT FARTHER AWAY FROM SULCUS AND WITHIN THE MOST RECENT GUIDENCE
     Route: 059
     Dates: start: 20210104

REACTIONS (8)
  - No adverse event [Unknown]
  - Overdose [Unknown]
  - Incorrect route of product administration [Unknown]
  - Complication associated with device [Not Recovered/Not Resolved]
  - Device placement issue [Not Recovered/Not Resolved]
  - Complication of device removal [Not Recovered/Not Resolved]
  - Incorrect product administration duration [Unknown]
  - Device use issue [Unknown]

NARRATIVE: CASE EVENT DATE: 201801
